FAERS Safety Report 14196114 (Version 2)
Quarter: 2018Q1

REPORT INFORMATION
  Report Type: Spontaneous
  Country: US (occurrence: US)
  Receive Date: 20171116
  Receipt Date: 20180312
  Transmission Date: 20180508
  Serious: Yes (Other)
  Sender: FDA-Public Use
  Company Number: US-BAYER-2017-221150

PATIENT

DRUGS (4)
  1. OMNISCAN [Suspect]
     Active Substance: GADODIAMIDE
     Indication: NUCLEAR MAGNETIC RESONANCE IMAGING
  2. GADAVIST [Suspect]
     Active Substance: GADOBUTROL
     Indication: NUCLEAR MAGNETIC RESONANCE IMAGING
  3. MULTIHANCE [Suspect]
     Active Substance: GADOBENATE DIMEGLUMINE
     Indication: NUCLEAR MAGNETIC RESONANCE IMAGING
  4. MAGNEVIST [Suspect]
     Active Substance: GADOPENTETATE DIMEGLUMINE
     Indication: NUCLEAR MAGNETIC RESONANCE IMAGING
     Dosage: UNK UNK, ONCE

REACTIONS (13)
  - Arthralgia [None]
  - Pain [None]
  - Gait disturbance [None]
  - Skin induration [None]
  - Heart rate increased [None]
  - Deafness [None]
  - Joint stiffness [None]
  - Visual impairment [None]
  - Asthenia [None]
  - Mobility decreased [None]
  - Gadolinium deposition disease [None]
  - Burning sensation [None]
  - Alopecia [None]
